FAERS Safety Report 6019660-7 (Version None)
Quarter: 2008Q4

REPORT INFORMATION
  Report Type: 
  Country: None (occurrence: None)
  Receive Date: 20081224
  Receipt Date: 20081219
  Transmission Date: 20090506
  Serious: Yes (Death, Other)
  Sender: FDA-Public Use
  Company Number: FR-AMGEN-UK322607

PATIENT
  Sex: Male

DRUGS (2)
  1. NEULASTA [Suspect]
     Indication: CHEMOTHERAPY
     Route: 065
  2. CISPLATIN [Concomitant]
     Dates: start: 20081101, end: 20081101

REACTIONS (2)
  - DEATH [None]
  - DRUG INEFFECTIVE [None]
